FAERS Safety Report 25002764 (Version 1)
Quarter: 2025Q1

REPORT INFORMATION
  Report Type: Report from Study
  Country: CN (occurrence: CN)
  Receive Date: 20250224
  Receipt Date: 20250224
  Transmission Date: 20250409
  Serious: Yes (Other)
  Sender: ROCHE
  Company Number: CN-ROCHE-10000211183

PATIENT

DRUGS (2)
  1. RITUXIMAB [Suspect]
     Active Substance: RITUXIMAB
     Indication: Neuromyelitis optica spectrum disorder
     Route: 065
  2. PREDNISONE [Suspect]
     Active Substance: PREDNISONE
     Indication: Neuromyelitis optica spectrum disorder
     Route: 065

REACTIONS (17)
  - Urinary tract infection [Unknown]
  - Upper respiratory tract infection [Unknown]
  - Herpes zoster [Unknown]
  - Brain abscess [Unknown]
  - Peritonitis [Unknown]
  - Leukopenia [Unknown]
  - Neutropenia [Unknown]
  - Pneumonia [Unknown]
  - Glucose tolerance impaired [Unknown]
  - Diabetes mellitus [Unknown]
  - Hypertension [Unknown]
  - Hyperlipidaemia [Unknown]
  - Deep vein thrombosis [Unknown]
  - Cerebral infarction [Unknown]
  - Osteonecrosis [Unknown]
  - Fracture [Unknown]
  - Infusion related reaction [Unknown]
